FAERS Safety Report 4887305-5 (Version None)
Quarter: 2005Q4

REPORT INFORMATION
  Report Type: 
  Country: None (occurrence: None)
  Receive Date: 20051221
  Receipt Date: 20050921
  Transmission Date: 20060501
  Serious: No
  Sender: FDA-Public Use
  Company Number: US-YAMANOUCHI-YPA20050502

PATIENT
  Sex: Female

DRUGS (7)
  1. VESICARE [Suspect]
     Indication: HYPERTONIC BLADDER
     Dosage: 5 MG QD PO
     Route: 048
     Dates: start: 20050920
  2. THEOPHYLLINE [Concomitant]
  3. PREDNISONE [Concomitant]
  4. DYFLEX-G TABLETS [Concomitant]
  5. XOPENEX [Concomitant]
  6. IPATROPIUM BROMIDE [Concomitant]
  7. FLOVENT [Concomitant]

REACTIONS (2)
  - DISORIENTATION [None]
  - FLATULENCE [None]
